FAERS Safety Report 9680940 (Version 1)
Quarter: 2013Q4

REPORT INFORMATION
  Report Type: Spontaneous
  Country: US (occurrence: US)
  Receive Date: 20131111
  Receipt Date: 20131111
  Transmission Date: 20140711
  Serious: Yes (Other)
  Sender: FDA-Public Use
  Company Number: US-BAYER-2013-134365

PATIENT
  Age: 54 Year
  Sex: Female

DRUGS (2)
  1. NEXAVAR [Suspect]
     Indication: OVARIAN CANCER
     Dosage: 400 MG, UNK
     Route: 048
  2. NEXAVAR [Suspect]
     Indication: OVARIAN CANCER
     Dosage: 200 MG, UNK
     Route: 048

REACTIONS (3)
  - Rash [Not Recovered/Not Resolved]
  - Off label use [None]
  - Wrong technique in drug usage process [None]
